FAERS Safety Report 7331082-5 (Version None)
Quarter: 2011Q1

REPORT INFORMATION
  Report Type: 
  Country: None (occurrence: None)
  Receive Date: 20110304
  Receipt Date: 20110222
  Transmission Date: 20110831
  Serious: Yes (Death, Hospitalization)
  Sender: FDA-Public Use
  Company Number: JP-JNJFOC-20110208178

PATIENT
  Sex: Female
  Weight: 53 kg

DRUGS (8)
  1. KETOPROFEN [Concomitant]
     Indication: MYALGIA
     Route: 061
  2. DOXORUBICIN HCL [Suspect]
     Indication: OVARIAN CANCER RECURRENT
     Dosage: CYCLE 1
     Route: 042
  3. GASTER [Concomitant]
     Indication: OVARIAN CANCER RECURRENT
     Route: 048
  4. GOSHA-JINKI-GAN [Concomitant]
     Indication: OVARIAN CANCER RECURRENT
     Route: 048
  5. CALONAL [Concomitant]
     Indication: OVARIAN CANCER RECURRENT
     Route: 048
  6. MUCOSTA [Concomitant]
     Indication: OVARIAN CANCER RECURRENT
     Route: 048
  7. WYPAX [Concomitant]
     Indication: OVARIAN CANCER RECURRENT
     Route: 048
  8. LENDORMIN D [Concomitant]
     Route: 048

REACTIONS (2)
  - OVARIAN CANCER METASTATIC [None]
  - INTESTINAL OBSTRUCTION [None]
